FAERS Safety Report 16892058 (Version 1)
Quarter: 2019Q4

REPORT INFORMATION
  Report Type: Spontaneous
  Country: US (occurrence: US)
  Receive Date: 20191007
  Receipt Date: 20191007
  Transmission Date: 20200122
  Serious: Yes (Other)
  Sender: FDA-Public Use
  Company Number: US-FRESENIUS KABI-FK201910921

PATIENT
  Age: 42 Year
  Sex: Female

DRUGS (6)
  1. FENTANYL. [Concomitant]
     Active Substance: FENTANYL
     Indication: INDUCTION OF ANAESTHESIA
     Route: 065
  2. PROPOFOL. [Concomitant]
     Active Substance: PROPOFOL
     Indication: INDUCTION OF ANAESTHESIA
     Route: 065
  3. SODIUM LACTATE/POTASSIUM CHLORIDE/SODIUM CHLORIDE/DEXTRAN/CALCIUM CHLORIDE [Suspect]
     Active Substance: CALCIUM CHLORIDE\POTASSIUM CHLORIDE\SODIUM CHLORIDE\SODIUM LACTATE
     Indication: PRODUCT USED FOR UNKNOWN INDICATION
     Dosage: 1300CM3
     Route: 065
  4. SEVOFLURANE. [Concomitant]
     Active Substance: SEVOFLURANE
     Indication: MAINTENANCE OF ANAESTHESIA
     Route: 065
  5. DEXTRAN [Suspect]
     Active Substance: DEXTRAN
  6. SODIUM CHLORIDE 0.9% (MANUFACTURER UNKNOWN) [Suspect]
     Active Substance: SODIUM CHLORIDE
     Indication: PRODUCT USED FOR UNKNOWN INDICATION
     Dosage: 2010CM3
     Route: 065

REACTIONS (6)
  - Hypercapnia [Recovered/Resolved]
  - Tidal volume decreased [Recovered/Resolved]
  - Fluid overload [Recovered/Resolved]
  - Airway peak pressure increased [Recovered/Resolved]
  - Haemodynamic instability [Recovered/Resolved]
  - Hypoxia [Recovered/Resolved]
